FAERS Safety Report 5759904-X (Version None)
Quarter: 2008Q2

REPORT INFORMATION
  Report Type: 
  Country: None (occurrence: None)
  Receive Date: 20080605
  Receipt Date: 20080528
  Transmission Date: 20081010
  Serious: Yes (Other)
  Sender: FDA-Public Use
  Company Number: US-JNJFOC-20080301929

PATIENT
  Sex: Female
  Weight: 107.96 kg

DRUGS (1)
  1. TOPAMAX [Suspect]
     Indication: ESSENTIAL TREMOR
     Route: 048

REACTIONS (1)
  - BLINDNESS [None]
